FAERS Safety Report 9599235 (Version 1)
Quarter: 2013Q4

REPORT INFORMATION
  Report Type: Spontaneous
  Country: US (occurrence: US)
  Receive Date: 20131004
  Receipt Date: 20131004
  Transmission Date: 20140711
  Serious: No
  Sender: FDA-Public Use
  Company Number: US-AMGEN-USASP2013027637

PATIENT
  Age: 47 Year
  Sex: Female
  Weight: 49.89 kg

DRUGS (13)
  1. ENBREL [Suspect]
     Indication: PRODUCT USED FOR UNKNOWN INDICATION
     Dosage: 50 MG, QWK
     Route: 058
  2. CALTRATE                           /00944201/ [Concomitant]
     Dosage: 600 UNK, UNK
  3. XANAX [Concomitant]
     Dosage: 0.5 MG, UNK
  4. PLAQUENIL                          /00072602/ [Concomitant]
     Dosage: 200 MG, UNK
  5. LASIX                              /00032601/ [Concomitant]
     Dosage: 40 MG, UNK
  6. TRILEPTAL [Concomitant]
     Dosage: 150 MG, UNK
  7. CHLOROQUINE [Concomitant]
     Dosage: 250 MG, UNK
  8. OXYCODONE [Concomitant]
     Dosage: 5 MG, UNK
  9. ADDERALL [Concomitant]
     Dosage: 20 MG, UNK
  10. VITAMIN B12                        /00056201/ [Concomitant]
     Dosage: 1000 UNK, UNK
  11. VITAMIN D3 [Concomitant]
     Dosage: 1000 UNIT, UNK
  12. IRON [Concomitant]
     Dosage: UNK
  13. NITROFURANTOIN [Concomitant]
     Dosage: 100 MG, UNK

REACTIONS (3)
  - Staphylococcal infection [Unknown]
  - Weight decreased [Unknown]
  - Drug hypersensitivity [Unknown]
